FAERS Safety Report 13668896 (Version 1)
Quarter: 2017Q2

REPORT INFORMATION
  Report Type: Spontaneous
  Country: US (occurrence: US)
  Receive Date: 20170619
  Receipt Date: 20170619
  Transmission Date: 20170830
  Serious: No
  Sender: FDA-Public Use
  Company Number: None

PATIENT
  Age: 20 Year
  Sex: Female
  Weight: 40.5 kg

DRUGS (2)
  1. SODIUM SULFACETAMIDE 10 AND SULFUR 5 [Suspect]
     Active Substance: SULFACETAMIDE SODIUM\SULFUR
     Indication: ACNE
     Dosage: ?          QUANTITY:1 SQUIRT OF FOAM;?
     Route: 061
  2. CALCIUM SUPPLEMENT W/ VITAMIN D [Concomitant]

REACTIONS (2)
  - Product quality issue [None]
  - Drug ineffective [None]

NARRATIVE: CASE EVENT DATE: 20170618
